FAERS Safety Report 12928197 (Version 1)
Quarter: 2016Q4

REPORT INFORMATION
  Report Type: Spontaneous
  Country: US (occurrence: US)
  Receive Date: 20161110
  Receipt Date: 20161110
  Transmission Date: 20170207
  Serious: No
  Sender: FDA-Public Use
  Company Number: US-ASTRAZENECA-2016SF11885

PATIENT
  Sex: Female

DRUGS (2)
  1. SEROQUEL [Suspect]
     Active Substance: QUETIAPINE FUMARATE
     Indication: BIPOLAR DISORDER
     Route: 048
     Dates: start: 2003
  2. REXULTI [Concomitant]
     Active Substance: BREXPIPRAZOLE

REACTIONS (3)
  - Autoimmune thyroiditis [Unknown]
  - Amnesia [Unknown]
  - Weight increased [Unknown]

NARRATIVE: CASE EVENT DATE: 2015
